FAERS Safety Report 14318677 (Version 1)
Quarter: 2017Q4

REPORT INFORMATION
  Report Type: Spontaneous
  Country: JP (occurrence: JP)
  Receive Date: 20171222
  Receipt Date: 20171222
  Transmission Date: 20180321
  Serious: Yes (Hospitalization, Other)
  Sender: FDA-Public Use
  Company Number: JP-MYLANLABS-2017M1078590

PATIENT
  Age: 70 Year
  Sex: Male

DRUGS (1)
  1. FUROSEMIDE. [Suspect]
     Active Substance: FUROSEMIDE
     Indication: FLUID OVERLOAD
     Dosage: 20MG PER DAY
     Route: 050

REACTIONS (6)
  - Pericardial effusion [Unknown]
  - Cardiac tamponade [Unknown]
  - Condition aggravated [Unknown]
  - Vitamin B1 deficiency [Recovering/Resolving]
  - Shock [Recovered/Resolved]
  - Atrial fibrillation [Unknown]
